FAERS Safety Report 12886850 (Version 1)
Quarter: 2016Q4

REPORT INFORMATION
  Report Type: Not Available
  Country: US (occurrence: US)
  Receive Date: 20161026
  Receipt Date: 20161026
  Transmission Date: 20170207
  Serious: No
  Sender: FDA-Public Use
  Company Number: US-3M-2016-US-004929

PATIENT
  Age: 58 Year
  Sex: Male

DRUGS (6)
  1. PERIDEX [Suspect]
     Active Substance: CHLORHEXIDINE GLUCONATE
     Dosage: 3 TIMES DAILY
     Route: 048
     Dates: start: 20160712, end: 20160717
  2. ASTAXANTHIN [Concomitant]
     Dosage: UNKNOWN
  3. CLARITIN [Concomitant]
     Active Substance: LORATADINE
     Dosage: UNKNOWN
  4. 50+ MULTIVITAMIN [Concomitant]
     Dosage: UNKNOWN
  5. PERCODAN [Concomitant]
     Active Substance: ASPIRIN\OXYCODONE HYDROCHLORIDE
     Dosage: UNKNOWN
  6. SOMA [Concomitant]
     Active Substance: CARISOPRODOL
     Dosage: UNKNOWN

REACTIONS (6)
  - Haematuria [Unknown]
  - Renal pain [Not Recovered/Not Resolved]
  - Pyrexia [Not Recovered/Not Resolved]
  - Gingival disorder [Not Recovered/Not Resolved]
  - Abdominal discomfort [Unknown]
  - Expired product administered [Not Recovered/Not Resolved]

NARRATIVE: CASE EVENT DATE: 201607
